FAERS Safety Report 24889984 (Version 1)
Quarter: 2025Q1

REPORT INFORMATION
  Report Type: Spontaneous
  Country: US (occurrence: None)
  Receive Date: 20250124
  Receipt Date: 20250124
  Transmission Date: 20250408
  Serious: Yes (Hospitalization, Disabling)
  Sender: FDA-CTU
  Company Number: None

PATIENT
  Age: 54 Year
  Sex: Female
  Weight: 74.25 kg

DRUGS (6)
  1. DUTASTERIDE [Suspect]
     Active Substance: DUTASTERIDE
     Indication: Alopecia scarring
     Dosage: 90 CAPSULES DAILY ORAL
     Route: 048
     Dates: start: 20230428
  2. DUTASTERIDE [Suspect]
     Active Substance: DUTASTERIDE
     Indication: Lichen planopilaris
  3. VITAMIN D [Concomitant]
     Active Substance: VITAMIN D NOS
  4. FISH OIL\OMEGA-3 FATTY ACIDS [Concomitant]
     Active Substance: FISH OIL\OMEGA-3 FATTY ACIDS
  5. VITAMIN B COMPLEX [Concomitant]
     Active Substance: CYANOCOBALAMIN\DEXPANTHENOL\NIACINAMIDE\PYRIDOXINE HYDROCHLORIDE\RIBOFLAVIN 5^-PHOSPHATE SODIUM\THIA
  6. POTASSIUM [Concomitant]
     Active Substance: POTASSIUM

REACTIONS (20)
  - Weight decreased [None]
  - Depression [None]
  - Suicidal ideation [None]
  - Mood altered [None]
  - Therapy cessation [None]
  - Asthenia [None]
  - Decreased appetite [None]
  - Malaise [None]
  - Insomnia [None]
  - Suicide attempt [None]
  - Product communication issue [None]
  - Brain fog [None]
  - Amnesia [None]
  - Depressed mood [None]
  - Family stress [None]
  - Myalgia [None]
  - Pain in extremity [None]
  - Breast mass [None]
  - Musculoskeletal stiffness [None]
  - Behaviour disorder [None]

NARRATIVE: CASE EVENT DATE: 20231230
